FAERS Safety Report 12538758 (Version 5)
Quarter: 2025Q4

REPORT INFORMATION
  Report Type: Report from Study
  Country: JP (occurrence: None)
  Receive Date: 20160708
  Receipt Date: 20251016
  Transmission Date: 20260118
  Serious: Yes (Other)
  Sender: ALEXION PHARMACEUTICALS
  Company Number: JP-ALXN-A201604927AA

PATIENT
  Age: 40 Year
  Sex: Male
  Weight: 73 kg

DRUGS (9)
  1. SOLIRIS [Suspect]
     Active Substance: ECULIZUMAB
     Indication: Paroxysmal nocturnal haemoglobinuria
     Dosage: 600 MG, QW
     Dates: start: 20130710, end: 20130731
  2. SOLIRIS [Suspect]
     Active Substance: ECULIZUMAB
     Dosage: 900 MG, Q2W
     Dates: start: 20130807, end: 20130915
  3. SOLIRIS [Suspect]
     Active Substance: ECULIZUMAB
     Dosage: 900 MG, EVERY 10 DAYS
  4. SOLIRIS [Suspect]
     Active Substance: ECULIZUMAB
     Dosage: 900 MG, EVERY 10 DAYS
  5. SOLIRIS [Suspect]
     Active Substance: ECULIZUMAB
     Dosage: 900 MG, EVERY 10 DAYS
  6. FOLIC ACID [Concomitant]
     Active Substance: FOLIC ACID
     Indication: Product used for unknown indication
     Dosage: 15 MG, QD
  7. METHYLCOBALAMIN [Concomitant]
     Active Substance: METHYLCOBALAMIN
     Indication: Product used for unknown indication
     Dosage: 1500 ?G, QD
     Dates: start: 20140210, end: 20170319
  8. FEBUXOSTAT [Concomitant]
     Active Substance: FEBUXOSTAT
     Indication: Product used for unknown indication
     Dosage: 20 MG, QD
     Dates: start: 20150528
  9. URSO                               /00465701/ [Concomitant]
     Indication: Product used for unknown indication
     Dosage: 300 MG, DAILY
     Dates: start: 20140707, end: 20161210

REACTIONS (6)
  - Extravascular haemolysis [Recovered/Resolved]
  - Haemolysis [Recovered/Resolved]
  - Enteritis infectious [Recovered/Resolved]
  - Drug ineffective [Unknown]
  - Upper respiratory tract infection [Recovered/Resolved]
  - Sinusitis [Recovered/Resolved]

NARRATIVE: CASE EVENT DATE: 20150410
